FAERS Safety Report 16071361 (Version 5)
Quarter: 2019Q3

REPORT INFORMATION
  Report Type: Spontaneous
  Country: US (occurrence: US)
  Receive Date: 20190314
  Receipt Date: 20190819
  Transmission Date: 20191004
  Serious: No
  Sender: FDA-Public Use
  Company Number: US-PFIZER INC-2019108080

PATIENT
  Age: 65 Year
  Sex: Female
  Weight: 86 kg

DRUGS (7)
  1. PALONOSETRON. [Concomitant]
     Active Substance: PALONOSETRON HYDROCHLORIDE
     Dosage: UNK
  2. TAXOTERE [Suspect]
     Active Substance: DOCETAXEL
     Indication: BREAST CANCER FEMALE
     Dosage: 140 MG, 4 CYCLES (EVERY 3 WEEKS)
     Dates: start: 20121010
  3. TAXOTERE [Suspect]
     Active Substance: DOCETAXEL
     Dosage: 115 MG, 4 CYCLES (EVERY 3 WEEKS)
     Dates: end: 20121218
  4. DOCETAXEL. [Suspect]
     Active Substance: DOCETAXEL
     Dosage: 115 MG, 4 CYCLES (EVERY 3 WEEKS)
     Dates: end: 20121218
  5. DOCETAXEL. [Suspect]
     Active Substance: DOCETAXEL
     Indication: BREAST CANCER FEMALE
     Dosage: 140 MG, 4 CYCLES (EVERY 3 WEEKS)
     Dates: start: 20121010
  6. CYTOXAN [Concomitant]
     Active Substance: CYCLOPHOSPHAMIDE
     Indication: CHEMOTHERAPY
     Dosage: UNK
  7. DEXAMETHASONE. [Concomitant]
     Active Substance: DEXAMETHASONE
     Dosage: UNK

REACTIONS (2)
  - Alopecia [Not Recovered/Not Resolved]
  - Madarosis [Not Recovered/Not Resolved]

NARRATIVE: CASE EVENT DATE: 201306
